FAERS Safety Report 7883904-7 (Version None)
Quarter: 2011Q4

REPORT INFORMATION
  Report Type: 
  Country: None (occurrence: None)
  Receive Date: 20111031
  Receipt Date: 20111018
  Transmission Date: 20120403
  Serious: Yes (Death)
  Sender: FDA-Public Use
  Company Number: JP-ACCORD-011089

PATIENT
  Age: 74 Year
  Sex: Female

DRUGS (3)
  1. D-PENICILLAMINE [Concomitant]
  2. TACROLIMUS [Suspect]
     Indication: RHEUMATOID ARTHRITIS
     Dosage: 2.00-MG-1.0DAYS
  3. PREDNISOLONE [Suspect]
     Indication: RHEUMATOID ARTHRITIS
     Dosage: 7.00-MG-1.0DAYS

REACTIONS (4)
  - WHITE BLOOD CELL COUNT INCREASED [None]
  - BLOOD LACTATE DEHYDROGENASE INCREASED [None]
  - OFF LABEL USE [None]
  - DIFFUSE ALVEOLAR DAMAGE [None]
